FAERS Safety Report 9657954 (Version 2)
Quarter: 2013Q4

REPORT INFORMATION
  Report Type: Spontaneous
  Country: US (occurrence: US)
  Receive Date: 20131030
  Receipt Date: 20131119
  Transmission Date: 20140711
  Serious: Yes (Other)
  Sender: FDA-Public Use
  Company Number: US-B.I. PHARMACEUTICALS,INC./RIDGEFIELD-2013-BI-33960BP

PATIENT
  Age: 60 Year
  Sex: Male
  Weight: 108 kg

DRUGS (7)
  1. MICARDIS HCT [Suspect]
     Indication: HYPERTENSION
     Dosage: STRENGTH: 80 MG / 12.5 MG; DAILY DOSE: 160 MG/ 25 MG
     Route: 048
     Dates: start: 2003
  2. MICARDIS HCT [Suspect]
     Dosage: STRENGTH: 80 MG / 12.5 MG; DAILY DOSE: 160 MG/ 25 MG
     Route: 048
     Dates: start: 20091201
  3. AMARYL [Concomitant]
     Indication: DIABETES MELLITUS
  4. PERCOCET [Concomitant]
     Indication: PAIN
  5. NORVASC [Concomitant]
     Indication: HYPERTENSION
  6. METFORMIN [Concomitant]
     Indication: DIABETES MELLITUS
  7. METOPROLOL [Concomitant]
     Indication: HYPERTENSION

REACTIONS (2)
  - Pituitary tumour benign [Not Recovered/Not Resolved]
  - Acromegaly [Not Recovered/Not Resolved]
